FAERS Safety Report 4749433-4 (Version None)
Quarter: 2005Q3

REPORT INFORMATION
  Report Type: 
  Country: None (occurrence: None)
  Receive Date: 20050822
  Receipt Date: 20050811
  Transmission Date: 20060218
  Serious: Yes (Hospitalization)
  Sender: FDA-Public Use
  Company Number: PHRM2005FR02278

PATIENT
  Age: 52 Year
  Sex: Female

DRUGS (3)
  1. AREDIA [Suspect]
     Indication: METASTASES TO BONE
     Dosage: 90 MG, QW
     Route: 042
     Dates: start: 20040201
  2. ALPHACAINE [Suspect]
     Indication: PERIODONTITIS
     Dosage: 2 DF
  3. TAXOTERE [Concomitant]
     Indication: BREAST CANCER METASTATIC
     Dates: start: 20040201

REACTIONS (6)
  - ASEPTIC NECROSIS BONE [None]
  - EXERESIS [None]
  - FISTULA [None]
  - GINGIVAL INFECTION [None]
  - IMPAIRED HEALING [None]
  - TOOTH EXTRACTION [None]
